FAERS Safety Report 4751575-4 (Version None)
Quarter: 2005Q3

REPORT INFORMATION
  Report Type: 
  Country: None (occurrence: None)
  Receive Date: 20050824
  Receipt Date: 20050804
  Transmission Date: 20060218
  Serious: Yes (Hospitalization)
  Sender: FDA-Public Use
  Company Number: JP-GLAXOSMITHKLINE-B0390089A

PATIENT
  Age: 75 Year
  Sex: Female

DRUGS (14)
  1. EPIVIR [Suspect]
     Indication: HIV INFECTION
     Route: 048
     Dates: start: 20021126
  2. VIREAD [Suspect]
     Indication: HIV INFECTION
     Dosage: 300MG PER DAY
     Route: 048
     Dates: start: 20021001
  3. VIDEX EC [Suspect]
     Indication: HIV INFECTION
     Route: 048
  4. VIRAMUNE [Suspect]
     Indication: HIV INFECTION
     Route: 048
  5. NORVIR [Concomitant]
     Indication: HIV INFECTION
     Route: 048
     Dates: start: 20040227
  6. REYATAZ [Concomitant]
     Indication: HIV INFECTION
     Route: 048
     Dates: start: 20040227
  7. BLOPRESS [Concomitant]
     Indication: HYPERTENSION
     Dosage: 8MG PER DAY
     Route: 048
     Dates: start: 20040401
  8. ADALAT [Concomitant]
     Indication: HYPERTENSION
     Dosage: 20MG TWICE PER DAY
     Route: 048
     Dates: start: 20040401
  9. CIBENOL [Concomitant]
     Indication: ARRHYTHMIA
     Dosage: 100MG TWICE PER DAY
     Route: 065
     Dates: start: 20040401
  10. ASPIRIN [Concomitant]
     Indication: ARRHYTHMIA
     Dosage: 100MG PER DAY
     Route: 048
     Dates: start: 20040401
  11. FRANDOL S [Concomitant]
     Indication: ARRHYTHMIA
     Route: 062
     Dates: start: 20040401
  12. COTRIM [Concomitant]
     Indication: INFECTION PROPHYLAXIS
     Dosage: 1 PER DAY
     Route: 048
     Dates: start: 20040401
  13. ADALAT [Concomitant]
     Indication: HYPERTENSION
     Dosage: 5MG PER DAY
     Route: 048
     Dates: start: 20040928, end: 20040929
  14. HERBESSER [Concomitant]
     Indication: HYPERTENSION
     Dosage: 30MG PER DAY
     Route: 065
     Dates: start: 20041005

REACTIONS (2)
  - ANAEMIA [None]
  - CHEST PAIN [None]
